FAERS Safety Report 8343398-4 (Version None)
Quarter: 2012Q2

REPORT INFORMATION
  Report Type: 
  Country: None (occurrence: None)
  Receive Date: 20120508
  Receipt Date: 20100331
  Transmission Date: 20120825
  Serious: No
  Sender: FDA-Public Use
  Company Number: US-TEVA-2010001886

PATIENT
  Sex: Male
  Weight: 69.916 kg

DRUGS (2)
  1. LEVAQUIN [Interacting]
  2. TREANDA [Suspect]
     Indication: CHRONIC LYMPHOCYTIC LEUKAEMIA
     Dosage: 4.5238 MILLIGRAM;
     Route: 042
     Dates: start: 20090909

REACTIONS (2)
  - DRUG INTERACTION [None]
  - SINUSITIS [None]
